FAERS Safety Report 21258673 (Version 1)
Quarter: 2022Q3

REPORT INFORMATION
  Report Type: Spontaneous
  Country: US (occurrence: None)
  Receive Date: 20220825
  Receipt Date: 20220825
  Transmission Date: 20221026
  Serious: Yes (Other)
  Sender: FDA-Public Use
  Company Number: None

PATIENT
  Age: 36 Year
  Sex: Female
  Weight: 72 kg

DRUGS (3)
  1. EMGALITY [Suspect]
     Active Substance: GALCANEZUMAB-GNLM
     Indication: Cluster headache
     Dosage: OTHER FREQUENCY : 300MG EVERY MONTH;?
     Route: 030
     Dates: start: 20220421
  2. IVABRADINE [Concomitant]
     Active Substance: IVABRADINE
  3. NIFEDIPINE [Concomitant]
     Active Substance: NIFEDIPINE

REACTIONS (2)
  - Injection site urticaria [None]
  - Injection site rash [None]

NARRATIVE: CASE EVENT DATE: 20220616
